FAERS Safety Report 7688032-1 (Version None)
Quarter: 2011Q3

REPORT INFORMATION
  Report Type: 
  Country: None (occurrence: None)
  Receive Date: 20110817
  Receipt Date: 20110815
  Transmission Date: 20111222
  Serious: No
  Sender: FDA-Public Use
  Company Number: US-PFIZER INC-2011187636

PATIENT
  Sex: Female
  Weight: 90.703 kg

DRUGS (5)
  1. SIMVASTATIN [Concomitant]
     Indication: BLOOD CHOLESTEROL INCREASED
     Dosage: UNK
  2. METFORMIN [Concomitant]
     Indication: DIABETES MELLITUS
     Dosage: UNK
  3. CELEBREX [Suspect]
     Indication: LIGAMENT INJURY
     Dosage: 100 MG, 1X/DAY
     Route: 048
     Dates: start: 20110629, end: 20110710
  4. SYNTHROID [Concomitant]
     Indication: THYROID DISORDER
     Dosage: UNK
  5. BENICAR [Concomitant]
     Indication: HYPERTENSION
     Dosage: UNK

REACTIONS (3)
  - FEELING ABNORMAL [None]
  - DIARRHOEA [None]
  - NAUSEA [None]
